FAERS Safety Report 4270106-9 (Version None)
Quarter: 2004Q1

REPORT INFORMATION
  Report Type: 
  Country: None (occurrence: None)
  Receive Date: 20040114
  Receipt Date: 20030310
  Transmission Date: 20041129
  Serious: No
  Sender: FDA-Public Use
  Company Number: US-GLAXOSMITHKLINE-A0399856A

PATIENT
  Age: 73 Year
  Sex: Male

DRUGS (6)
  1. WELLBUTRIN [Suspect]
     Route: 048
     Dates: start: 20021101
  2. CELEXA [Concomitant]
  3. EFFEXOR [Concomitant]
  4. ASPIRIN [Concomitant]
     Route: 065
  5. TOPROL-XL [Concomitant]
  6. HYTRIN [Concomitant]
     Route: 065

REACTIONS (1)
  - DRUG INEFFECTIVE [None]
